FAERS Safety Report 7099613-0 (Version None)
Quarter: 2010Q4

REPORT INFORMATION
  Report Type: 
  Country: None (occurrence: None)
  Receive Date: 20101112
  Receipt Date: 20101108
  Transmission Date: 20110411
  Serious: Yes (Hospitalization)
  Sender: FDA-Public Use
  Company Number: US-JNJCH-2010025626

PATIENT
  Age: 42 Year
  Sex: Male
  Weight: 88.5 kg

DRUGS (1)
  1. LISTERINE [Suspect]
     Indication: ALCOHOL USE
     Dosage: TEXT:FOUR LITER BOTTLES ONCE
     Route: 048
     Dates: start: 20101107, end: 20101107

REACTIONS (2)
  - INCORRECT ROUTE OF DRUG ADMINISTRATION [None]
  - INTENTIONAL DRUG MISUSE [None]
